FAERS Safety Report 6809881-5 (Version None)
Quarter: 2010Q2

REPORT INFORMATION
  Report Type: 
  Country: None (occurrence: None)
  Receive Date: 20100630
  Receipt Date: 20100618
  Transmission Date: 20101027
  Serious: Yes (Hospitalization)
  Sender: FDA-Public Use
  Company Number: GB-WATSON-2010-08550

PATIENT
  Age: 37 Year
  Sex: Female
  Weight: 50.6 kg

DRUGS (2)
  1. LAMOTRIGINE [Suspect]
     Indication: EPILEPSY
     Dosage: 25 MG, Q 2 DAYS
     Route: 048
     Dates: start: 20100521, end: 20100603
  2. VALPROATE SODIUM [Concomitant]
     Indication: DRUG USE FOR UNKNOWN INDICATION
     Dosage: 900 MG, BID

REACTIONS (8)
  - DECREASED APPETITE [None]
  - ERYTHEMA [None]
  - LETHARGY [None]
  - LIP BLISTER [None]
  - LIP SWELLING [None]
  - MOBILITY DECREASED [None]
  - MOUTH ULCERATION [None]
  - RASH PAPULAR [None]
